FAERS Safety Report 23121979 (Version 4)
Quarter: 2023Q4

REPORT INFORMATION
  Report Type: Report from Study
  Country: CA (occurrence: CA)
  Receive Date: 20231030
  Receipt Date: 20231121
  Transmission Date: 20240110
  Serious: Yes (Hospitalization)
  Sender: FDA-Public Use
  Company Number: CA-Eisai-EC-2023-151246

PATIENT
  Age: 82 Year
  Sex: Female
  Weight: 64.4 kg

DRUGS (15)
  1. LENVATINIB [Suspect]
     Active Substance: LENVATINIB
     Indication: Endometrial cancer
     Route: 048
     Dates: start: 20230727, end: 20231018
  2. PEMBROLIZUMAB [Suspect]
     Active Substance: PEMBROLIZUMAB
     Indication: Endometrial cancer
     Route: 042
     Dates: start: 20230727, end: 20230928
  3. SERTRALINE HYDROCHLORIDE [Concomitant]
     Active Substance: SERTRALINE HYDROCHLORIDE
     Dates: start: 201001
  4. HYDROCHLOROTHIAZIDE [Concomitant]
     Active Substance: HYDROCHLOROTHIAZIDE
     Dates: start: 20191026, end: 20231018
  5. NATURAL VITAMIN D [Concomitant]
     Dates: start: 20221009
  6. PROCAL [CALCIUM ACETATE] [Concomitant]
     Dates: start: 20220110
  7. PREDNISONE [Concomitant]
     Active Substance: PREDNISONE
     Dates: start: 20220606, end: 20231018
  8. DEXILANT [Concomitant]
     Active Substance: DEXLANSOPRAZOLE
     Dates: start: 20221202
  9. MAGNESIUM GLYCEROPHOSPHATE;MAGNESIUM GLYCINATE;MAGNESIUM OXIDE [Concomitant]
     Dates: start: 20230113
  10. CANDESARTAN [Concomitant]
     Active Substance: CANDESARTAN
     Dates: start: 20230305, end: 20231018
  11. IMODIUM [Concomitant]
     Active Substance: LOPERAMIDE HYDROCHLORIDE
     Dates: start: 20230312
  12. RISEDRONATE SODIUM [Concomitant]
     Active Substance: RISEDRONATE SODIUM
     Dates: start: 20230818, end: 20231031
  13. SODIUM CHLORIDE [Concomitant]
     Active Substance: SODIUM CHLORIDE
     Dates: start: 20231018, end: 20231018
  14. PREGABALIN [Concomitant]
     Active Substance: PREGABALIN
     Dates: start: 201712, end: 20231018
  15. SYNTHROID [Concomitant]
     Active Substance: LEVOTHYROXINE SODIUM
     Dates: start: 20190605

REACTIONS (1)
  - Colitis [Recovered/Resolved]

NARRATIVE: CASE EVENT DATE: 20231018
